FAERS Safety Report 9030258 (Version 5)
Quarter: 2013Q1

REPORT INFORMATION
  Report Type: Report from Study
  Country: DE (occurrence: DE)
  Receive Date: 20130116
  Receipt Date: 20130320
  Transmission Date: 20140127
  Serious: Yes (Hospitalization)
  Sender: FDA-Public Use
  Company Number: DE-ROCHE-1176881

PATIENT
  Age: 72 Year
  Sex: Female
  Weight: 68 kg

DRUGS (5)
  1. BEVACIZUMAB [Suspect]
     Indication: OVARIAN CANCER
     Dosage: LAST DOSE PRIOR TO SAE:29/JAN/2013
     Route: 042
     Dates: start: 20130108
  2. CARBOPLATIN [Suspect]
     Indication: OVARIAN CANCER
     Dosage: LAST DOSE PRIOR TO SAE:29/JAN/2013
     Route: 042
     Dates: start: 20121218
  3. PACLITAXEL [Suspect]
     Indication: OVARIAN CANCER
     Dosage: LAST DOSE PRIOR TO SAE:29/JAN/2013
     Route: 042
     Dates: start: 20121218
  4. KALPRESS PLUS [Concomitant]
     Indication: HYPERTENSION
     Dosage: LAST DOSE PRIOR TO SAE:05/FEB/2013
     Route: 065
     Dates: start: 20110101
  5. METOPROLOL [Concomitant]
     Indication: HYPERTENSION
     Dosage: LAST DOSE PRIOR TO SAE:05/FEB/2013
     Route: 048
     Dates: start: 20110101

REACTIONS (3)
  - General physical health deterioration [Recovered/Resolved]
  - General physical health deterioration [Recovered/Resolved]
  - Hyponatraemia [Recovered/Resolved]
